FAERS Safety Report 8352589-8 (Version None)
Quarter: 2012Q2

REPORT INFORMATION
  Report Type: 
  Country: None (occurrence: None)
  Receive Date: 20120511
  Receipt Date: 20120305
  Transmission Date: 20120825
  Serious: No
  Sender: FDA-Public Use
  Company Number: US-COVIDIEN/TYCO HEALTHCARE/MALLINCKRODT-T201200835

PATIENT
  Sex: Female

DRUGS (1)
  1. FENTANYL-100 [Suspect]
     Dosage: UNK

REACTIONS (3)
  - DIZZINESS [None]
  - FEELING ABNORMAL [None]
  - VOMITING [None]
